FAERS Safety Report 18927031 (Version 1)
Quarter: 2021Q1

REPORT INFORMATION
  Report Type: Spontaneous
  Country: US (occurrence: US)
  Receive Date: 20210222
  Receipt Date: 20210222
  Transmission Date: 20210420
  Serious: Yes (Hospitalization)
  Sender: FDA-Public Use
  Company Number: None

PATIENT
  Age: 89 Year
  Sex: Female

DRUGS (10)
  1. CINACALCET 30 MG TABLET [Concomitant]
  2. CLOPIDOGREL 75 MG TABLET [Concomitant]
  3. CLINDAMYCIN 300 MG CAPSULE [Concomitant]
  4. ORENCIA [Suspect]
     Active Substance: ABATACEPT
     Indication: ARTHRITIS
     Dosage: ?          OTHER FREQUENCY:ONCE A WEEK;?
     Route: 058
  5. DOXYCYC MONO 100 MG TABLET [Concomitant]
  6. PREGABALIN 25 MG CAPSULE [Concomitant]
  7. ONDANSETRON 4 MG  TABLET [Concomitant]
  8. DILTIAZEM 120 MG ER CAPSULE [Concomitant]
  9. WARFARIN 2 MG TABLET [Concomitant]
  10. POT CL MICRO 20MEQ ER TABLET [Concomitant]

REACTIONS (5)
  - Faecaloma [None]
  - Parathyroid disorder [None]
  - Blood calcium increased [None]
  - Abscess [None]
  - Intentional dose omission [None]

NARRATIVE: CASE EVENT DATE: 20210116
